FAERS Safety Report 8065949-X (Version None)
Quarter: 2012Q1

REPORT INFORMATION
  Report Type: 
  Country: None (occurrence: None)
  Receive Date: 20120124
  Receipt Date: 20120113
  Transmission Date: 20120608
  Serious: Yes (Life-Threatening)
  Sender: FDA-Public Use
  Company Number: FR-MPIJNJ-2012-00322

PATIENT

DRUGS (3)
  1. MELPHALAN [Concomitant]
     Dosage: UNK
     Dates: start: 20111005
  2. PREDNISONE TAB [Concomitant]
     Dosage: UNK
     Dates: start: 20111005
  3. VELCADE [Suspect]
     Indication: MULTIPLE MYELOMA
     Dosage: 3.5 MG, UNK
     Route: 042
     Dates: start: 20111005

REACTIONS (1)
  - LUNG DISORDER [None]
